FAERS Safety Report 12394118 (Version 6)
Quarter: 2017Q1

REPORT INFORMATION
  Report Type: Spontaneous
  Country: AU (occurrence: AU)
  Receive Date: 20160523
  Receipt Date: 20170228
  Transmission Date: 20170428
  Serious: Yes (Other)
  Sender: FDA-Public Use
  Company Number: AU-PFIZER INC-2016261210

PATIENT
  Sex: Male

DRUGS (14)
  1. OSTELIN /00107901/ [Concomitant]
     Dosage: 25 MG, UNK
  2. CHOLECALCIFEROL [Concomitant]
     Active Substance: CHOLECALCIFEROL
     Dosage: 1 DF, UNK
  3. BIO MAGNESIUM /01486801/ [Concomitant]
     Dosage: 1 DF, DAILY
  4. FRUSEMIDE /00032601/ [Concomitant]
     Active Substance: FUROSEMIDE
     Dosage: 0.5 DF, DAILY
  5. CAVSTAT [Concomitant]
     Dosage: UNK
  6. CO ENZYME Q10 /00517201/ [Concomitant]
     Dosage: 1 DF, MORNING
  7. VIAGRA [Suspect]
     Active Substance: SILDENAFIL CITRATE
     Indication: POST PROCEDURAL COMPLICATION
  8. XARELTO [Concomitant]
     Active Substance: RIVAROXABAN
     Dosage: 1 DF, MORNING
  9. ACIMAX [Concomitant]
     Active Substance: OMEPRAZOLE
     Dosage: 20 MG, MORNING/NIGHT
  10. ANTENEX [Concomitant]
     Active Substance: DIAZEPAM
     Dosage: 5 MG, 3X/DAY AS NEEDED
  11. NOTEN [Concomitant]
     Active Substance: ATENOLOL
     Dosage: 1 DF, 2X/DAY
  12. DIABEX [Concomitant]
     Active Substance: METFORMIN HYDROCHLORIDE
     Dosage: 1 DF, DAILY
  13. VIAGRA [Suspect]
     Active Substance: SILDENAFIL CITRATE
     Indication: ERECTILE DYSFUNCTION
     Dosage: 100 MG, AS NEEDED ONCE A DAY
     Dates: start: 2016
  14. ADESAN [Concomitant]
     Dosage: 32 MG, UNK

REACTIONS (14)
  - Crying [Unknown]
  - Feeling abnormal [Unknown]
  - Condition aggravated [Not Recovered/Not Resolved]
  - Ejaculation failure [Not Recovered/Not Resolved]
  - Initial insomnia [Unknown]
  - Drug ineffective [Not Recovered/Not Resolved]
  - Depression [Unknown]
  - Testicular swelling [Not Recovered/Not Resolved]
  - Headache [Unknown]
  - Abnormal dreams [Unknown]
  - Blood pressure increased [Not Recovered/Not Resolved]
  - Post-traumatic stress disorder [Not Recovered/Not Resolved]
  - Testicular pain [Not Recovered/Not Resolved]
  - Dizziness [Unknown]
